FAERS Safety Report 8822453 (Version 2)
Quarter: 2012Q4

REPORT INFORMATION
  Report Type: 
  Country: AU (occurrence: AU)
  Receive Date: 20121003
  Receipt Date: 20121101
  Transmission Date: 20130627
  Serious: Yes (Other)
  Sender: FDA-Public Use
  Company Number: AU-ELI_LILLY_AND_COMPANY-AU201208008551

PATIENT
  Sex: Male

DRUGS (1)
  1. CIALIS [Suspect]
     Indication: ERECTILE DYSFUNCTION
     Dosage: 1 DF, prn
     Dates: start: 2006

REACTIONS (4)
  - Scotoma [Recovered/Resolved]
  - Tinnitus [Unknown]
  - Drug ineffective [Unknown]
  - Counterfeit drug administered [Unknown]
